FAERS Safety Report 24293703 (Version 1)
Quarter: 2024Q3

REPORT INFORMATION
  Report Type: Spontaneous
  Country: US (occurrence: None)
  Receive Date: 20240906
  Receipt Date: 20240906
  Transmission Date: 20241017
  Serious: No
  Sender: DOMPE FARMACEUTICI
  Company Number: US-FARMAPROD-202308-202402-0591

PATIENT
  Sex: Female

DRUGS (14)
  1. OXERVATE [Suspect]
     Active Substance: CENEGERMIN-BKBJ
     Indication: Neurotrophic keratopathy
     Route: 047
     Dates: start: 20240212
  2. CEQUA [Concomitant]
     Active Substance: CYCLOSPORINE
     Dosage: DROPERETTE
  3. RIZATRIPTAN [Concomitant]
     Active Substance: RIZATRIPTAN
  4. MIRALAX [Concomitant]
     Active Substance: POLYETHYLENE GLYCOL 3350
     Dosage: 17 GRAM /DOSE
  5. MULTIVITAMIN 50 PLUS [Concomitant]
  6. PANTOPRAZOLE SODIUM [Concomitant]
     Active Substance: PANTOPRAZOLE SODIUM
  7. SYSTANE COMPLETE [Concomitant]
     Active Substance: PROPYLENE GLYCOL
  8. CALCIUM\CHOLECALCIFEROL [Concomitant]
     Active Substance: CALCIUM\CHOLECALCIFEROL
     Dosage: 600 MG-12.5
  9. ACYCLOVIR [Concomitant]
     Active Substance: ACYCLOVIR
  10. PILOCARPINE HYDROCHLORIDE [Concomitant]
     Active Substance: PILOCARPINE HYDROCHLORIDE
  11. METHOTREXATE [Concomitant]
     Active Substance: METHOTREXATE
  12. NORTRIPTYLINE HYDROCHLORIDE [Concomitant]
     Active Substance: NORTRIPTYLINE HYDROCHLORIDE
  13. DIVALPROEX SODIUM [Concomitant]
     Active Substance: DIVALPROEX SODIUM
  14. HYDROXYCHLOROQUINE SULFATE [Concomitant]
     Active Substance: HYDROXYCHLOROQUINE SULFATE

REACTIONS (1)
  - Wrong technique in product usage process [Unknown]
